FAERS Safety Report 4315750-5 (Version None)
Quarter: 2004Q1

REPORT INFORMATION
  Report Type: 
  Country: None (occurrence: None)
  Receive Date: 20040310
  Receipt Date: 20040226
  Transmission Date: 20041129
  Serious: Yes (Disabling)
  Sender: FDA-Public Use
  Company Number: 2003120434

PATIENT
  Age: 73 Year
  Sex: Male
  Weight: 71.2147 kg

DRUGS (26)
  1. LIPITOR [Suspect]
     Indication: HYPERCHOLESTEROLAEMIA
     Dosage: 10 MG (DAILY), ORAL
     Route: 048
     Dates: start: 19981201, end: 20020101
  2. PRAVASTATIN [Suspect]
     Indication: HYPERCHOLESTEROLAEMIA
     Dosage: 10 MG (DAILY), ORAL
     Route: 048
     Dates: start: 20020801, end: 20020101
  3. PAROXETINE HCL [Suspect]
     Indication: DEPRESSION
     Dosage: 10 MG (DAILY), ORAL
     Route: 048
     Dates: start: 20021001, end: 20020101
  4. TRAZODONE [Concomitant]
  5. MAGNESIUM [Concomitant]
  6. SELENIUM TRACE METAL ADDITIVE [Concomitant]
  7. GABAPENTIN [Concomitant]
  8. UBIDECARENONE [Concomitant]
  9. HYZAAR [Concomitant]
  10. CARVEDILOL [Concomitant]
  11. HYDROCHLOROTHIAZIDE [Concomitant]
  12. ASPIRIN [Concomitant]
  13. CARISOPRODOL [Concomitant]
  14. VICODIN [Concomitant]
  15. CODEINE [Concomitant]
  16. CANNABIS [Concomitant]
  17. GLUCOSAMINE W/CHONDROITIN SULFATES (ASCORBID ACID, MANGANESE, CHONDROI [Concomitant]
  18. PSEUDOEPHEDRINE HYDROCHLORIDE [Concomitant]
  19. CITALOPRAM HYDROBROMIDE [Concomitant]
  20. RANITIDINE HYDROCHLORIDE [Concomitant]
  21. CAFFEINE [Concomitant]
  22. LORAZEPAM [Concomitant]
  23. EFLORNITHINE [Concomitant]
  24. LOSARTAN [Concomitant]
  25. SPIRONOLACTONE [Concomitant]
  26. ALL OTHER THERAPEUTIC PRODUCTS [Concomitant]

REACTIONS (45)
  - ACTIVITIES OF DAILY LIVING IMPAIRED [None]
  - AFFECTIVE DISORDER [None]
  - ANGER [None]
  - ANXIETY [None]
  - AORTIC VALVE INCOMPETENCE [None]
  - APATHY [None]
  - ASTHENIA [None]
  - BLOOD CREATINE PHOSPHOKINASE INCREASED [None]
  - BLOOD UREA INCREASED [None]
  - DEPRESSION [None]
  - DIFFICULTY IN WALKING [None]
  - DILATATION ATRIAL [None]
  - DISCOMFORT [None]
  - DYSPEPSIA [None]
  - FATIGUE [None]
  - FEELING JITTERY [None]
  - GAIT DISTURBANCE [None]
  - GASTROOESOPHAGEAL REFLUX DISEASE [None]
  - HALLUCINATION [None]
  - HEADACHE [None]
  - INSOMNIA [None]
  - LABORATORY TEST ABNORMAL [None]
  - LOW DENSITY LIPOPROTEIN INCREASED [None]
  - MALAISE [None]
  - MITRAL VALVE INCOMPETENCE [None]
  - MUSCLE CRAMP [None]
  - MUSCLE FATIGUE [None]
  - MUSCLE SPASMS [None]
  - MYALGIA [None]
  - MYOPATHY [None]
  - NAUSEA [None]
  - NERVOUSNESS [None]
  - ONYCHOMYCOSIS [None]
  - OSTEOARTHRITIS [None]
  - PAIN [None]
  - PAIN IN EXTREMITY [None]
  - PALPITATIONS [None]
  - POLYTRAUMATISM [None]
  - POOR QUALITY SLEEP [None]
  - PSYCHOMOTOR HYPERACTIVITY [None]
  - RHEUMATOID FACTOR POSITIVE [None]
  - THINKING ABNORMAL [None]
  - VENTRICULAR DYSFUNCTION [None]
  - VOMITING [None]
  - WEIGHT INCREASED [None]
